FAERS Safety Report 5651467-2 (Version None)
Quarter: 2008Q1

REPORT INFORMATION
  Report Type: 
  Country: None (occurrence: None)
  Receive Date: 20080305
  Receipt Date: 20080222
  Transmission Date: 20080703
  Serious: Yes (Other)
  Sender: FDA-Public Use
  Company Number: AU-WYE-H02934908

PATIENT
  Sex: Male

DRUGS (4)
  1. CORDARONE [Suspect]
     Indication: ARRHYTHMIA
     Route: 065
  2. ASPIRIN [Concomitant]
     Dosage: 100 MG/FREQUENCY NOT PROVIDED
     Route: 065
  3. LASIX [Concomitant]
     Dosage: 40 MG/FREQUENCY NOT PROVIDED
     Route: 065
  4. ATACAND [Concomitant]
     Dosage: 16 MG/FREQUENCY NOT PROVIDED
     Route: 065

REACTIONS (5)
  - INSOMNIA [None]
  - NASAL CONGESTION [None]
  - NASAL DRYNESS [None]
  - PANIC ATTACK [None]
  - RESTLESSNESS [None]
